FAERS Safety Report 17321443 (Version 1)
Quarter: 2020Q1

REPORT INFORMATION
  Report Type: Spontaneous
  Country: RU (occurrence: RU)
  Receive Date: 20200126
  Receipt Date: 20200126
  Transmission Date: 20200409
  Serious: Yes (Death)
  Sender: FDA-Public Use
  Company Number: RU-BIOGEN-2020BI00829794

PATIENT
  Age: 2 Month
  Sex: Male
  Weight: 4.2 kg

DRUGS (1)
  1. SPINRAZA [Suspect]
     Active Substance: NUSINERSEN
     Indication: SPINAL MUSCULAR ATROPHY
     Route: 065
     Dates: start: 20191212, end: 20191226

REACTIONS (1)
  - Death [Fatal]

NARRATIVE: CASE EVENT DATE: 20200104
